FAERS Safety Report 12914594 (Version 1)
Quarter: 2016Q4

REPORT INFORMATION
  Report Type: Spontaneous
  Country: US (occurrence: US)
  Receive Date: 20161106
  Receipt Date: 20161106
  Transmission Date: 20170207
  Serious: No
  Sender: FDA-Public Use
  Company Number: US-RELYPSA-RLY2016001871

PATIENT
  Age: 61 Year
  Sex: Male

DRUGS (16)
  1. FUROSEMIDE. [Concomitant]
     Active Substance: FUROSEMIDE
  2. HYDRALAZINE HCL [Concomitant]
     Active Substance: HYDRALAZINE HYDROCHLORIDE
  3. LOSARTAN POTASSIUM. [Concomitant]
     Active Substance: LOSARTAN POTASSIUM
  4. SYMLINPEN [Concomitant]
     Active Substance: PRAMLINTIDE ACETATE
  5. TRADJENTA [Concomitant]
     Active Substance: LINAGLIPTIN
  6. VELTASSA [Suspect]
     Active Substance: PATIROMER
     Indication: HYPERKALAEMIA
     Dosage: 8.4 G, QD
     Route: 048
  7. ASPIRIN. [Concomitant]
     Active Substance: ASPIRIN
     Dosage: UNK
  8. GLIPIZIDE. [Concomitant]
     Active Substance: GLIPIZIDE
  9. PIOGLITAZONE HCL [Concomitant]
     Active Substance: PIOGLITAZONE
  10. HUMALOG [Concomitant]
     Active Substance: INSULIN LISPRO
  11. KIONEX [Concomitant]
     Active Substance: SODIUM POLYSTYRENE SULFONATE
  12. MAGNESIUM [Concomitant]
     Active Substance: MAGNESIUM
  13. CARVEDILOL. [Concomitant]
     Active Substance: CARVEDILOL
  14. ATORVASTATIN CALCIUM. [Concomitant]
     Active Substance: ATORVASTATIN CALCIUM
  15. CIALIS [Concomitant]
     Active Substance: TADALAFIL
  16. CULTURELLE [Concomitant]
     Active Substance: LACTOBACILLUS RHAMNOSUS

REACTIONS (2)
  - Treatment noncompliance [Not Recovered/Not Resolved]
  - No adverse event [Unknown]

NARRATIVE: CASE EVENT DATE: 20160812
